FAERS Safety Report 7282290-3 (Version None)
Quarter: 2010Q4

REPORT INFORMATION
  Report Type: 
  Country: None (occurrence: None)
  Receive Date: 20101221
  Receipt Date: 20100917
  Transmission Date: 20110411
  Serious: Yes (Other)
  Sender: FDA-Public Use
  Company Number: WAES 1009USA03641

PATIENT
  Age: 57 Year
  Sex: Female
  Weight: 124.2856 kg

DRUGS (11)
  1. JANUVIA [Suspect]
     Indication: TYPE 2 DIABETES MELLITUS
     Dosage: 100 MG/DAILY/PO
     Route: 048
     Dates: start: 20090109, end: 20100913
  2. ESTRACE [Concomitant]
  3. MOBIC [Concomitant]
  4. OPTIVAR OPHTHALMIC SOLUTION [Concomitant]
  5. ALBUTEROL [Concomitant]
  6. ASPIRIN [Concomitant]
  7. METFORMIN HYDROCHLORIDE [Concomitant]
  8. NORTRIPTYLINE HYDROCHLORIDE [Concomitant]
  9. NYSTATIN (+) TRIAMCINOLONE ACETATE [Concomitant]
  10. PIOGLITAZONE HYDROCHLORIDE [Concomitant]
  11. VITAMIN E [Concomitant]

REACTIONS (1)
  - ANGIOEDEMA [None]
